FAERS Safety Report 4365162-3 (Version None)
Quarter: 2004Q2

REPORT INFORMATION
  Report Type: 
  Country: None (occurrence: None)
  Receive Date: 20040525
  Receipt Date: 20040310
  Transmission Date: 20050107
  Serious: No
  Sender: FDA-Public Use
  Company Number: PHEH2004US01563

PATIENT
  Age: 39 Year
  Sex: Female
  Weight: 67.1 kg

DRUGS (5)
  1. ZELNORM [Suspect]
     Indication: IRRITABLE BOWEL SYNDROME
     Dosage: 6 MG, BID ORAL
     Route: 048
     Dates: start: 20040122, end: 20040217
  2. PRILOSEC [Concomitant]
  3. ALBUTEROL [Concomitant]
  4. AZMACORT [Concomitant]
  5. SEREVENT [Concomitant]

REACTIONS (3)
  - EYE DISCHARGE [None]
  - EYE IRRITATION [None]
  - EYE REDNESS [None]
